FAERS Safety Report 6389940-4 (Version None)
Quarter: 2009Q4

REPORT INFORMATION
  Report Type: 
  Country: None (occurrence: None)
  Receive Date: 20091006
  Receipt Date: 20090518
  Transmission Date: 20100525
  Serious: No
  Sender: FDA-Public Use
  Company Number: US-BRISTOL-MYERS SQUIBB COMPANY-14627822

PATIENT
  Age: 66 Year
  Sex: Male

DRUGS (1)
  1. AVAPRO [Suspect]
     Indication: HYPERTENSION
     Dosage: 1 DOSAGE FORM = 1/2 TABLET (TO EQUAL 150MG)

REACTIONS (1)
  - SKIN EXFOLIATION [None]
